FAERS Safety Report 19424815 (Version 2)
Quarter: 2021Q2

REPORT INFORMATION
  Report Type: Spontaneous
  Country: GB (occurrence: GB)
  Receive Date: 20210617
  Receipt Date: 20210621
  Transmission Date: 20210717
  Serious: Yes (Hospitalization, Other)
  Sender: FDA-Public Use
  Company Number: GB-STRIDES ARCOLAB LIMITED-2021SP006455

PATIENT
  Age: 26 Year
  Sex: Male

DRUGS (9)
  1. TACROLIMUS. [Suspect]
     Active Substance: TACROLIMUS
     Indication: IMMUNOSUPPRESSANT DRUG THERAPY
     Dosage: 5 MILLIGRAM, EVERY 12 HRS (TWICE DAILY)
     Route: 065
     Dates: start: 2001, end: 2016
  2. TACROLIMUS. [Suspect]
     Active Substance: TACROLIMUS
     Indication: RENAL TRANSPLANT
     Dosage: 2 MILLIGRAM, BID
     Route: 065
  3. MYCOPHENOLATE MOFETIL. [Suspect]
     Active Substance: MYCOPHENOLATE MOFETIL
     Indication: RENAL TRANSPLANT
  4. PREDNISOLONE. [Suspect]
     Active Substance: PREDNISOLONE
     Indication: IMMUNOSUPPRESSANT DRUG THERAPY
     Dosage: 5 MILLIGRAM, PER DAY
     Route: 065
     Dates: start: 2001, end: 2016
  5. CEFTRIAXONE. [Concomitant]
     Active Substance: CEFTRIAXONE
     Indication: MENINGITIS
     Dosage: UNK
     Route: 042
  6. ACICLOVIR [Concomitant]
     Active Substance: ACYCLOVIR
     Indication: MENINGITIS
     Dosage: UNK
     Route: 065
  7. PREDNISOLONE. [Suspect]
     Active Substance: PREDNISOLONE
     Indication: RENAL TRANSPLANT
  8. MYCOPHENOLATE MOFETIL. [Suspect]
     Active Substance: MYCOPHENOLATE MOFETIL
     Indication: IMMUNOSUPPRESSANT DRUG THERAPY
     Dosage: 500 MILLIGRAM, EVERY 12 HRS (TWICE DAILY)
     Route: 065
     Dates: start: 2001, end: 2016
  9. MEROPENEM. [Concomitant]
     Active Substance: MEROPENEM
     Indication: ANTIBIOTIC THERAPY
     Dosage: UNK
     Route: 065

REACTIONS (5)
  - Toxoplasmosis [Recovered/Resolved]
  - Central nervous system immune reconstitution inflammatory response [Recovered/Resolved]
  - Eye infection toxoplasmal [Recovered/Resolved]
  - Epstein-Barr virus infection reactivation [Recovered/Resolved]
  - Transplant rejection [Unknown]

NARRATIVE: CASE EVENT DATE: 2012
